FAERS Safety Report 5410073-5 (Version None)
Quarter: 2007Q3

REPORT INFORMATION
  Report Type: 
  Country: None (occurrence: None)
  Receive Date: 20070713
  Receipt Date: 20070605
  Transmission Date: 20080115
  Serious: No
  Sender: FDA-Public Use
  Company Number: 2007SP002126

PATIENT
  Age: 60 Year
  Sex: Female
  Weight: 74.8435 kg

DRUGS (6)
  1. LUNESTA [Suspect]
     Indication: INSOMNIA
     Dosage: 2 MG;ORAL; 3 MG; ORAL; 4 MG; ORAL
     Route: 048
     Dates: start: 20070601, end: 20070601
  2. LUNESTA [Suspect]
     Indication: INSOMNIA
     Dosage: 2 MG;ORAL; 3 MG; ORAL; 4 MG; ORAL
     Route: 048
     Dates: start: 20070601, end: 20070601
  3. LUNESTA [Suspect]
     Indication: INSOMNIA
     Dosage: 2 MG;ORAL; 3 MG; ORAL; 4 MG; ORAL
     Route: 048
     Dates: start: 20070601
  4. WELLBUTRIN [Concomitant]
  5. PROZAC [Concomitant]
  6. ATENOLOL [Concomitant]

REACTIONS (2)
  - DYSGEUSIA [None]
  - MIDDLE INSOMNIA [None]
